FAERS Safety Report 10333757 (Version 3)
Quarter: 2015Q1

REPORT INFORMATION
  Report Type: Spontaneous
  Country: US (occurrence: US)
  Receive Date: 20140723
  Receipt Date: 20150119
  Transmission Date: 20150720
  Serious: No
  Sender: FDA-Public Use
  Company Number: US-UNITED THERAPEUTICS-UTC-047910

PATIENT
  Age: 76 Year
  Sex: Female
  Weight: 65.31 kg

DRUGS (3)
  1. LETAIRIS [Concomitant]
     Active Substance: AMBRISENTAN
     Indication: PRODUCT USED FOR UNKNOWN INDICATION
  2. REMODULIN [Suspect]
     Active Substance: TREPROSTINIL
     Dosage: 0.06 ?G/KG/MIN, CONTINUING
     Route: 058
     Dates: start: 20130726
  3. REVATIO [Concomitant]
     Active Substance: SILDENAFIL CITRATE
     Indication: PRODUCT USED FOR UNKNOWN INDICATION

REACTIONS (10)
  - Drug dose omission [Unknown]
  - Urticaria [Unknown]
  - Dermatitis contact [Unknown]
  - Infusion site erythema [Unknown]
  - Rash [Unknown]
  - Device dislocation [Unknown]
  - Pruritus [Unknown]
  - Diarrhoea [Unknown]
  - Pain [Unknown]
  - Infusion site pruritus [Unknown]

NARRATIVE: CASE EVENT DATE: 201406
